FAERS Safety Report 24094035 (Version 3)
Quarter: 2024Q3

REPORT INFORMATION
  Report Type: Spontaneous
  Country: CA (occurrence: CA)
  Receive Date: 20240716
  Receipt Date: 20240830
  Transmission Date: 20241017
  Serious: Yes (Hospitalization, Other)
  Sender: SANDOZ
  Company Number: CA-SANDOZ-SDZ2024CA064799

PATIENT
  Age: 17 Year
  Sex: Female

DRUGS (25)
  1. COLCHICINE [Suspect]
     Active Substance: COLCHICINE
     Indication: Type III immune complex mediated reaction
     Dosage: UNK
     Route: 065
  2. DICLOFENAC [Suspect]
     Active Substance: DICLOFENAC
     Indication: Injection site pain
     Dosage: UNK
     Route: 061
  3. EMLA [Suspect]
     Active Substance: LIDOCAINE\PRILOCAINE
     Indication: Injection site pain
     Dosage: UNK
     Route: 061
  4. HYDROXYCHLOROQUINE [Suspect]
     Active Substance: HYDROXYCHLOROQUINE
     Indication: Type III immune complex mediated reaction
     Dosage: UNK
     Route: 065
  5. INSULIN HUMAN [Suspect]
     Active Substance: INSULIN HUMAN
     Indication: Type 1 diabetes mellitus
     Dosage: UNK
     Route: 033
  6. KETAMINE [Suspect]
     Active Substance: KETAMINE
     Indication: Injection site pain
     Dosage: UNK
     Route: 061
  7. LIDOCAINE [Suspect]
     Active Substance: LIDOCAINE
     Indication: Injection site pain
     Dosage: UNK
     Route: 061
  8. METHOTREXATE [Suspect]
     Active Substance: METHOTREXATE
     Indication: Type III immune complex mediated reaction
     Dosage: UNK
     Route: 065
  9. NAPROXEN [Suspect]
     Active Substance: NAPROXEN
     Indication: Injection site pain
     Dosage: UNK
     Route: 065
  10. PREGABALIN [Suspect]
     Active Substance: PREGABALIN
     Indication: Product used for unknown indication
     Dosage: 25 MG, QD
     Route: 048
  11. PREGABALIN [Suspect]
     Active Substance: PREGABALIN
     Dosage: 25 MG, BID
     Route: 048
  12. PREGABALIN [Suspect]
     Active Substance: PREGABALIN
     Dosage: UNK
     Route: 065
  13. TACROLIMUS [Suspect]
     Active Substance: TACROLIMUS
     Indication: Type III immune complex mediated reaction
     Dosage: UNK
     Route: 065
  14. DULOXETINE [Suspect]
     Active Substance: DULOXETINE
     Indication: Injection site pain
     Dosage: UNK
     Route: 065
  15. COLCHICINE [Concomitant]
     Active Substance: COLCHICINE
     Indication: Type III immune complex mediated reaction
     Route: 065
  16. HYDROXYCHLOROQUINE [Concomitant]
     Active Substance: HYDROXYCHLOROQUINE
     Indication: Type III immune complex mediated reaction
     Route: 065
  17. INSULIN NOS [Concomitant]
     Active Substance: INSULIN NOS
     Indication: Type 1 diabetes mellitus
     Dosage: GLOBULES ORAL
     Route: 058
  18. INSULIN NOS [Concomitant]
     Active Substance: INSULIN NOS
     Dosage: UNK
     Route: 065
  19. INSULIN ASPART [Concomitant]
     Active Substance: INSULIN ASPART
     Indication: Type 1 diabetes mellitus
     Dosage: UNK
     Route: 058
  20. INSULIN DEGLUDEC [Concomitant]
     Active Substance: INSULIN DEGLUDEC
     Indication: Type 1 diabetes mellitus
     Dosage: UNK
     Route: 058
  21. INSULIN GLARGINE [Concomitant]
     Active Substance: INSULIN GLARGINE
     Indication: Type 1 diabetes mellitus
     Dosage: UNK
     Route: 058
  22. INSULIN GLULISINE [Concomitant]
     Active Substance: INSULIN GLULISINE
     Indication: Type 1 diabetes mellitus
     Dosage: UNK
     Route: 058
  23. INSULIN LISPRO [Concomitant]
     Active Substance: INSULIN LISPRO
     Indication: Type 1 diabetes mellitus
     Dosage: UNK
     Route: 058
  24. METHOTREXATE [Concomitant]
     Active Substance: METHOTREXATE
     Indication: Type III immune complex mediated reaction
     Route: 065
  25. TACROLIMUS [Concomitant]
     Active Substance: TACROLIMUS
     Indication: Type III immune complex mediated reaction
     Dosage: UNK
     Route: 065

REACTIONS (6)
  - Medical device site abscess [Unknown]
  - Medical device site cellulitis [Unknown]
  - Off label use [Unknown]
  - Drug ineffective for unapproved indication [Unknown]
  - Drug ineffective [Unknown]
  - Therapy partial responder [Unknown]
